FAERS Safety Report 5736612-2 (Version None)
Quarter: 2008Q2

REPORT INFORMATION
  Report Type: 
  Country: None (occurrence: None)
  Receive Date: 20080513
  Receipt Date: 20080507
  Transmission Date: 20081010
  Serious: Yes (Disabling)
  Sender: FDA-Public Use
  Company Number: US-ASTRAZENECA-2008UW09485

PATIENT
  Age: 74 Year
  Sex: Male

DRUGS (2)
  1. CASODEX [Suspect]
     Route: 048
     Dates: start: 20080310
  2. ALLOPURINOL [Concomitant]

REACTIONS (3)
  - BALANCE DISORDER [None]
  - FATIGUE [None]
  - MUSCLE TIGHTNESS [None]
